FAERS Safety Report 8783346 (Version 2)
Quarter: 2012Q4

REPORT INFORMATION
  Report Type: 
  Country: DE (occurrence: DE)
  Receive Date: 20120913
  Receipt Date: 20121031
  Transmission Date: 20130627
  Serious: Yes (Hospitalization)
  Sender: FDA-Public Use
  Company Number: DE-ALLERGAN-1212193US

PATIENT
  Age: 81 Year
  Sex: Female

DRUGS (3)
  1. LUMIGAN [Suspect]
     Indication: IOP INCREASED
     Dosage: 1 Gtt, qd
     Route: 047
     Dates: start: 20111015, end: 20111024
  2. LUMIGAN [Suspect]
     Indication: GLAUCOMA
     Dosage: 1 Gtt, qd
     Route: 047
  3. SYMBICORT [Concomitant]
     Indication: COPD

REACTIONS (6)
  - Respiratory distress [Recovered/Resolved]
  - Circulatory collapse [Recovered/Resolved]
  - Respiratory tract congestion [Unknown]
  - Night sweats [Unknown]
  - Visual impairment [Unknown]
  - Vision blurred [Unknown]
